FAERS Safety Report 11499611 (Version 1)
Quarter: 2015Q3

REPORT INFORMATION
  Report Type: Spontaneous
  Country: US (occurrence: US)
  Receive Date: 20150914
  Receipt Date: 20150914
  Transmission Date: 20151125
  Serious: No
  Sender: FDA-Public Use
  Company Number: US-009507513-1509USA003794

PATIENT
  Age: 8 Year
  Sex: Female

DRUGS (1)
  1. SINGULAIR [Suspect]
     Active Substance: MONTELUKAST SODIUM
     Indication: SEASONAL ALLERGY
     Dosage: UNK, QD OFF AND ON
     Route: 048
     Dates: start: 201404, end: 201504

REACTIONS (9)
  - Inflammation [Recovering/Resolving]
  - Depression [Recovering/Resolving]
  - Anger [Recovering/Resolving]
  - Crying [Recovering/Resolving]
  - Anaphylactic reaction [Recovering/Resolving]
  - Abnormal behaviour [Recovering/Resolving]
  - Personality change [Recovering/Resolving]
  - Anxiety [Recovering/Resolving]
  - Muscle twitching [Recovering/Resolving]

NARRATIVE: CASE EVENT DATE: 201404
